FAERS Safety Report 15448899 (Version 2)
Quarter: 2018Q4

REPORT INFORMATION
  Report Type: Spontaneous
  Country: US (occurrence: US)
  Receive Date: 20180930
  Receipt Date: 20181008
  Transmission Date: 20190204
  Serious: No
  Sender: FDA-Public Use
  Company Number: US-009507513-1809USA010404

PATIENT
  Age: 37 Year
  Sex: Female

DRUGS (7)
  1. GANIRELIX ACETATE INJECTION [Suspect]
     Active Substance: GANIRELIX ACETATE
     Indication: INFERTILITY FEMALE
     Dosage: 250 MG, QPM
     Route: 058
     Dates: start: 20180820
  2. DOXYCYCLINE. [Concomitant]
     Active Substance: DOXYCYCLINE
  3. ESTRADIOL. [Concomitant]
     Active Substance: ESTRADIOL
  4. MONODUR [Concomitant]
     Active Substance: ISOSORBIDE MONONITRATE
  5. PROGESTERONE. [Concomitant]
     Active Substance: PROGESTERONE
  6. FOLLISTIM [Suspect]
     Active Substance: FOLLITROPIN
     Indication: INFERTILITY FEMALE
     Dosage: 150 DF, QD
     Route: 058
     Dates: start: 20180820
  7. GONADOTROPIN, CHORIONIC [Concomitant]
     Active Substance: CHORIOGONADOTROPIN ALFA

REACTIONS (2)
  - Circumstance or information capable of leading to medication error [Unknown]
  - Product packaging issue [Unknown]

NARRATIVE: CASE EVENT DATE: 20180919
